FAERS Safety Report 25658089 (Version 1)
Quarter: 2025Q3

REPORT INFORMATION
  Report Type: Spontaneous
  Country: CN (occurrence: CN)
  Receive Date: 20250808
  Receipt Date: 20250808
  Transmission Date: 20251020
  Serious: Yes (Hospitalization)
  Sender: ALEXION PHARMACEUTICALS
  Company Number: CN-ASTRAZENECA-202508CHN003995CN

PATIENT
  Age: 56 Year
  Sex: Female
  Weight: 45 kg

DRUGS (4)
  1. LYNPARZA [Suspect]
     Active Substance: OLAPARIB
     Indication: Ovarian neoplasm
     Dosage: 150 MILLIGRAM, BID
     Dates: start: 20250716, end: 20250716
  2. LYNPARZA [Suspect]
     Active Substance: OLAPARIB
     Dosage: 150 MILLIGRAM, BID
     Dates: start: 20250717, end: 20250804
  3. BEVACIZUMAB [Suspect]
     Active Substance: BEVACIZUMAB
     Indication: Ovarian cancer
     Dosage: 400 MILLIGRAM, QD
     Dates: start: 20250716, end: 20250716
  4. BEVACIZUMAB [Suspect]
     Active Substance: BEVACIZUMAB
     Dosage: 400 MILLIGRAM, QD
     Dates: start: 20250716, end: 20250716

REACTIONS (4)
  - Haemoglobin decreased [Recovering/Resolving]
  - Myelosuppression [Recovering/Resolving]
  - Dizziness [Recovering/Resolving]
  - Asthenia [Recovering/Resolving]

NARRATIVE: CASE EVENT DATE: 20250804
